FAERS Safety Report 8557335-0 (Version None)
Quarter: 2012Q3

REPORT INFORMATION
  Report Type: 
  Country: None (occurrence: None)
  Receive Date: 20120726
  Receipt Date: 20120726
  Transmission Date: 20120928
  Serious: Yes (Hospitalization)
  Sender: FDA-Public Use
  Company Number: None

PATIENT
  Age: 57 Year
  Sex: Male
  Weight: 90 kg

DRUGS (2)
  1. SODIUM CHLORIDE 3% [Suspect]
     Indication: HYPONATRAEMIA
     Dosage: VARIED CONTINUOUS INTRAVENOUS
     Route: 042
     Dates: start: 20120718, end: 20120720
  2. SODIUM CHLORIDE 3% [Suspect]
     Indication: BRAIN OEDEMA
     Dosage: VARIED CONTINUOUS INTRAVENOUS
     Route: 042
     Dates: start: 20120718, end: 20120720

REACTIONS (2)
  - PRODUCT QUALITY ISSUE [None]
  - DRUG INEFFECTIVE [None]
